FAERS Safety Report 7898774-0 (Version None)
Quarter: 2011Q4

REPORT INFORMATION
  Report Type: 
  Country: None (occurrence: None)
  Receive Date: 20111107
  Receipt Date: 20111031
  Transmission Date: 20120403
  Serious: Yes (Other)
  Sender: FDA-Public Use
  Company Number: US-ABBOTT-11P-163-0868292-00

PATIENT
  Sex: Female

DRUGS (5)
  1. VERAPAMIL [Concomitant]
     Indication: BLOOD PRESSURE INCREASED
  2. COUMADIN [Interacting]
     Indication: DEEP VEIN THROMBOSIS
     Dates: start: 20010101, end: 20111021
  3. DIOVAN [Concomitant]
     Indication: BLOOD PRESSURE INCREASED
  4. JANUMET [Concomitant]
     Indication: DIABETES MELLITUS
     Dosage: 50/500
  5. TRICOR [Suspect]
     Indication: LIPIDS INCREASED
     Dates: start: 20111011, end: 20111014

REACTIONS (9)
  - DRUG INTERACTION [None]
  - INTERNATIONAL NORMALISED RATIO INCREASED [None]
  - DYSPNOEA [None]
  - BLOOD PRESSURE INCREASED [None]
  - HEADACHE [None]
  - DIZZINESS [None]
  - NAUSEA [None]
  - COUGH [None]
  - OROPHARYNGEAL PAIN [None]
